FAERS Safety Report 18762840 (Version 1)
Quarter: 2021Q1

REPORT INFORMATION
  Report Type: Spontaneous
  Country: LT (occurrence: LT)
  Receive Date: 20210120
  Receipt Date: 20210120
  Transmission Date: 20210419
  Serious: Yes (Hospitalization, Other)
  Sender: FDA-Public Use
  Company Number: LT-FRESENIUS KABI-FK202100676

PATIENT
  Age: 73 Year
  Sex: Female

DRUGS (2)
  1. TRIFLURIDINE/TIPIRACIL HYDROCHLORIDE [Concomitant]
     Active Substance: TIPIRACIL HYDROCHLORIDE\TRIFLURIDINE
     Indication: ADENOCARCINOMA
     Dosage: LONSURF (TRIFLURIDINE/TIPIRACIL) (35 MG/M2, 6 CYCLES)
     Route: 065
  2. IRINOTECAN (MANUFACTURER UNKNOWN) [Suspect]
     Active Substance: IRINOTECAN
     Indication: ADENOCARCINOMA
     Dosage: 6 CYCLES
     Route: 065
     Dates: start: 201908

REACTIONS (4)
  - Neutropenia [Unknown]
  - Diarrhoea [Unknown]
  - Impaired quality of life [Unknown]
  - Anaemia [Unknown]
